FAERS Safety Report 25022987 (Version 1)
Quarter: 2025Q1

REPORT INFORMATION
  Report Type: Spontaneous
  Country: AU (occurrence: AU)
  Receive Date: 20250228
  Receipt Date: 20250228
  Transmission Date: 20250409
  Serious: Yes (Death)
  Sender: MYLAN
  Company Number: AU-MYLANLABS-2025M1017357

PATIENT
  Age: 62 Year
  Sex: Female

DRUGS (1)
  1. CLOZARIL [Suspect]
     Active Substance: CLOZAPINE
     Indication: Schizophrenia

REACTIONS (1)
  - Death [Fatal]

NARRATIVE: CASE EVENT DATE: 20250129
